FAERS Safety Report 14477494 (Version 1)
Quarter: 2018Q1

REPORT INFORMATION
  Report Type: Report from Study
  Country: US (occurrence: US)
  Receive Date: 20180201
  Receipt Date: 20180201
  Transmission Date: 20180509
  Serious: No
  Sender: FDA-Public Use
  Company Number: US-EXELIXIS-CABO-17010766

PATIENT
  Sex: Female

DRUGS (15)
  1. COMETRIQ [Suspect]
     Active Substance: CABOZANTINIB S-MALATE
     Indication: THYROID CANCER
     Dosage: 20 MG, QD
     Route: 048
     Dates: start: 20140321, end: 20140408
  2. COMETRIQ [Suspect]
     Active Substance: CABOZANTINIB S-MALATE
     Indication: BREAST CANCER FEMALE
     Dosage: 20 MG, QOD WITH 40MG QOD
  3. FUROSEMIDE. [Concomitant]
     Active Substance: FUROSEMIDE
  4. DIGOXIN. [Concomitant]
     Active Substance: DIGOXIN
  5. LEVOTHYROXIN [Concomitant]
     Active Substance: LEVOTHYROXINE
  6. CALCIUM CARBONATE. [Concomitant]
     Active Substance: CALCIUM CARBONATE
  7. VITAMIN C [Concomitant]
     Active Substance: ASCORBIC ACID
  8. ATENOLOL. [Concomitant]
     Active Substance: ATENOLOL
  9. SPIRONOLACTON [Concomitant]
     Active Substance: SPIRONOLACTONE
  10. GLUCOSAMINE CHONDROITIN [Concomitant]
     Active Substance: CHONDROITIN SULFATE (BOVINE)\GLUCOSAMINE HYDROCHLORIDE
  11. POTASSIUM CHLORIDE. [Concomitant]
     Active Substance: POTASSIUM CHLORIDE
  12. TRAVATAN [Concomitant]
     Active Substance: TRAVOPROST
  13. ELIQUIS [Concomitant]
     Active Substance: APIXABAN
  14. METFORMIN [Concomitant]
     Active Substance: METFORMIN HYDROCHLORIDE
  15. OCUVITE [Concomitant]
     Active Substance: VITAMINS

REACTIONS (1)
  - Dyspnoea [Not Recovered/Not Resolved]
